FAERS Safety Report 22252699 (Version 4)
Quarter: 2023Q4

REPORT INFORMATION
  Report Type: Report from Study
  Country: US (occurrence: US)
  Receive Date: 20230426
  Receipt Date: 20231024
  Transmission Date: 20240110
  Serious: Yes (Other)
  Sender: FDA-Public Use
  Company Number: US-002147023-NVSC2023US094746

PATIENT
  Age: 74 Year
  Sex: Male

DRUGS (2)
  1. ENTRESTO [Suspect]
     Active Substance: SACUBITRIL\VALSARTAN
     Indication: Cardiac failure
     Dosage: UNK
     Route: 065
  2. ENTRESTO [Suspect]
     Active Substance: SACUBITRIL\VALSARTAN
     Dosage: 24.26 MG, BID
     Route: 048
     Dates: start: 202310

REACTIONS (2)
  - Cardiac failure [Unknown]
  - Hypertension [Unknown]

NARRATIVE: CASE EVENT DATE: 20231001
